FAERS Safety Report 5475586-9 (Version None)
Quarter: 2007Q4

REPORT INFORMATION
  Report Type: 
  Country: None (occurrence: None)
  Receive Date: 20071003
  Receipt Date: 20070117
  Transmission Date: 20080405
  Serious: No
  Sender: FDA-Public Use
  Company Number: US-KINGPHARMUSA00001-K200700050

PATIENT

DRUGS (10)
  1. SONATA [Suspect]
     Indication: INSOMNIA
     Dosage: 3800-4000 MG, SINGLE
     Route: 048
     Dates: start: 20061225, end: 20061225
  2. ADDERALL 20 [Concomitant]
     Indication: ATTENTION DEFICIT/HYPERACTIVITY DISORDER
     Dosage: 20 MG, BID
     Route: 048
  3. AMBIEN [Concomitant]
     Indication: INSOMNIA
     Dosage: 12.5 MG, QHS
     Route: 048
  4. CYMBALTA [Concomitant]
     Indication: PERSONALITY DISORDER
     Dosage: 60 MG, QAM
     Route: 048
  5. KLONOPIN [Concomitant]
     Dosage: 2 MG, QD
     Route: 048
  6. LIPITOR [Concomitant]
     Indication: BLOOD CHOLESTEROL INCREASED
     Dosage: 40 MG, QD
     Route: 048
  7. NEXIUM [Concomitant]
     Indication: GASTROOESOPHAGEAL REFLUX DISEASE
     Dosage: 40 MG, QD
     Route: 048
  8. PHENOBARBITAL TAB [Concomitant]
     Indication: PAIN
     Dosage: UNK, QD
     Route: 048
  9. TYLENOL (CAPLET) [Concomitant]
     Indication: PAIN
     Dosage: 650 UNK, PRN
     Route: 048
  10. IBUPROFEN [Concomitant]
     Indication: PAIN
     Dosage: 400 UNK, PRN
     Route: 048

REACTIONS (1)
  - INTENTIONAL OVERDOSE [None]
